FAERS Safety Report 17062594 (Version 1)
Quarter: 2019Q4

REPORT INFORMATION
  Report Type: Spontaneous
  Country: IN (occurrence: IN)
  Receive Date: 20191122
  Receipt Date: 20191122
  Transmission Date: 20200122
  Serious: Yes (Hospitalization, Other)
  Sender: FDA-Public Use
  Company Number: IN-ROCHE-2470813

PATIENT
  Sex: Female

DRUGS (7)
  1. VINCRISTINE [Concomitant]
     Active Substance: VINCRISTINE
  2. MITOXANTRONE [Concomitant]
     Active Substance: MITOXANTRONE HYDROCHLORIDE
  3. RITUXAN [Suspect]
     Active Substance: RITUXIMAB
     Indication: B-CELL LYMPHOMA
     Dosage: NO
     Route: 065
  4. PREDNISONE. [Concomitant]
     Active Substance: PREDNISONE
  5. CYCLOPHOSPHAMIDE. [Concomitant]
     Active Substance: CYCLOPHOSPHAMIDE
  6. GAZYVA [Suspect]
     Active Substance: OBINUTUZUMAB
     Indication: NON-HODGKIN^S LYMPHOMA
     Dosage: UNKNOWN
     Route: 042
  7. BENDAMUSTINE [Concomitant]
     Active Substance: BENDAMUSTINE

REACTIONS (4)
  - Toxicity to various agents [Unknown]
  - Effusion [Unknown]
  - Hypotension [Unknown]
  - Non-Hodgkin^s lymphoma [Unknown]
